FAERS Safety Report 24426323 (Version 1)
Quarter: 2024Q4

REPORT INFORMATION
  Report Type: Spontaneous
  Country: TN (occurrence: TN)
  Receive Date: 20241011
  Receipt Date: 20241011
  Transmission Date: 20250114
  Serious: Yes (Hospitalization, Other)
  Sender: QUAGEN PHARMACEUTICALS
  Company Number: TN-QUAGEN-2024QUALIT00337

PATIENT
  Age: 50 Year
  Sex: Female

DRUGS (1)
  1. LEVETIRACETAM [Suspect]
     Active Substance: LEVETIRACETAM
     Indication: Seizure
     Route: 065
     Dates: start: 201307, end: 201307

REACTIONS (2)
  - Cardio-respiratory arrest [Unknown]
  - Drug ineffective [Unknown]
